FAERS Safety Report 7385906-6 (Version None)
Quarter: 2011Q1

REPORT INFORMATION
  Report Type: 
  Country: None (occurrence: None)
  Receive Date: 20110331
  Receipt Date: 20110324
  Transmission Date: 20110831
  Serious: Yes (Hospitalization, Other)
  Sender: FDA-Public Use
  Company Number: CA-AMGEN-CANSP2011013769

PATIENT
  Sex: Female
  Weight: 60 kg

DRUGS (2)
  1. NEULASTA [Suspect]
     Indication: CHEMOTHERAPY
     Dosage: 6 MG, AFTER CHEMO
     Route: 058
     Dates: start: 20110214
  2. ANTINEOPLASTIC AGENTS [Concomitant]

REACTIONS (4)
  - CHEST PAIN [None]
  - PAIN IN EXTREMITY [None]
  - NEUTROPHIL COUNT INCREASED [None]
  - LEUKOCYTOSIS [None]
